FAERS Safety Report 21323198 (Version 1)
Quarter: 2022Q3

REPORT INFORMATION
  Report Type: Spontaneous
  Country: US (occurrence: None)
  Receive Date: 20220909
  Receipt Date: 20220909
  Transmission Date: 20221027
  Serious: Yes (Life-Threatening, Disabling, Other)
  Sender: FDA-Public Use
  Company Number: None

PATIENT
  Age: 58 Year
  Sex: Female
  Weight: 54 kg

DRUGS (6)
  1. GABAPENTIN [Suspect]
     Active Substance: GABAPENTIN
     Indication: Occipital neuralgia
     Dosage: OTHER QUANTITY : 1 TABLET(S);?FREQUENCY : AT BEDTIME;?
     Route: 048
     Dates: start: 20190901, end: 20210114
  2. ESTRADIOL [Concomitant]
     Active Substance: ESTRADIOL
  3. VITAMIN C [Concomitant]
     Active Substance: ASCORBIC ACID
  4. black seed oil [Concomitant]
  5. VITAMIN B12 [Concomitant]
     Active Substance: CYANOCOBALAMIN
  6. WEST WHEAT GRASS [Concomitant]
     Active Substance: PASCOPYRUM SMITHII POLLEN

REACTIONS (25)
  - Dyspnoea [None]
  - Neck pain [None]
  - Arthralgia [None]
  - Weight decreased [None]
  - Decreased appetite [None]
  - Irritability [None]
  - Asthenia [None]
  - Blood pressure decreased [None]
  - Tinnitus [None]
  - Drug withdrawal syndrome [None]
  - Depression [None]
  - Suicidal behaviour [None]
  - Paranoia [None]
  - Nausea [None]
  - Arthralgia [None]
  - Headache [None]
  - Autophobia [None]
  - Emotional disorder [None]
  - Alopecia [None]
  - Post-traumatic stress disorder [None]
  - Insomnia [None]
  - Fatigue [None]
  - Dry mouth [None]
  - Quality of life decreased [None]
  - Impaired work ability [None]

NARRATIVE: CASE EVENT DATE: 20210114
